FAERS Safety Report 20823698 (Version 2)
Quarter: 2023Q1

REPORT INFORMATION
  Report Type: Report from Study
  Country: US (occurrence: US)
  Receive Date: 20220513
  Receipt Date: 20230202
  Transmission Date: 20230417
  Serious: No
  Sender: FDA-Public Use
  Company Number: US-ACADIA PHARMACEUTICALS INC.-ACA-2022-PIM-001411

PATIENT
  Age: 69 Year
  Sex: Female

DRUGS (6)
  1. NUPLAZID [Suspect]
     Active Substance: PIMAVANSERIN TARTRATE
     Indication: Parkinson^s disease psychosis
     Dosage: 34 MILLIGRAM, QD
     Route: 048
     Dates: start: 20220510
  2. NUPLAZID [Suspect]
     Active Substance: PIMAVANSERIN TARTRATE
     Indication: Hallucination
     Dosage: 34 MILLIGRAM, QD
     Route: 048
  3. NUPLAZID [Suspect]
     Active Substance: PIMAVANSERIN TARTRATE
     Indication: Delusion
  4. NUPLAZID [Suspect]
     Active Substance: PIMAVANSERIN TARTRATE
     Indication: Parkinson^s disease
  5. OLANZAPINE [Concomitant]
     Active Substance: OLANZAPINE
     Dosage: 2.5 MG THRICE
     Dates: start: 202203, end: 202205
  6. PAROXETINE [Concomitant]
     Active Substance: PAROXETINE
     Dosage: 30 MG
     Dates: start: 202209, end: 202301

REACTIONS (5)
  - Condition aggravated [Not Recovered/Not Resolved]
  - Product dose omission issue [Unknown]
  - Adverse drug reaction [Unknown]
  - Confusional state [Not Recovered/Not Resolved]
  - Hallucination [Not Recovered/Not Resolved]

NARRATIVE: CASE EVENT DATE: 20221201
